FAERS Safety Report 10217769 (Version 11)
Quarter: 2015Q4

REPORT INFORMATION
  Report Type: Spontaneous
  Country: ES (occurrence: ES)
  Receive Date: 20140604
  Receipt Date: 20151012
  Transmission Date: 20160304
  Serious: Yes (Hospitalization, Other)
  Sender: FDA-Public Use
  Company Number: ES-AMGEN INC.-ESPSP2014041445

PATIENT
  Age: 42 Year
  Sex: Female

DRUGS (11)
  1. FENTANIL [Suspect]
     Active Substance: FENTANYL
     Indication: PAIN
     Dosage: 25 MG, CYCLIC
     Route: 062
  2. FOLIC ACID. [Concomitant]
     Active Substance: FOLIC ACID
     Dosage: 1 DF, DAILY
  3. NOLOTIL /SPA/ [Concomitant]
     Active Substance: METAMIZOLE
     Dosage: UNK, AS NEEDED
  4. ENBREL [Suspect]
     Active Substance: ETANERCEPT
     Dosage: 50 MG, WEEKLY
     Route: 058
     Dates: start: 20140914
  5. ESPIDIFEN [Concomitant]
     Active Substance: IBUPROFEN
     Indication: PAIN
     Dosage: UNK, AS NEEDED
  6. ENBREL [Suspect]
     Active Substance: ETANERCEPT
     Indication: PSORIATIC ARTHROPATHY
     Dosage: 50 MG, WEEKLY
     Route: 058
     Dates: start: 20140513, end: 20140527
  7. ENBREL [Suspect]
     Active Substance: ETANERCEPT
     Dosage: UNK
     Route: 058
  8. METHOTREXATE SODIUM. [Suspect]
     Active Substance: METHOTREXATE SODIUM
     Indication: PSORIATIC ARTHROPATHY
     Dosage: 2.5 MG, WEEKLY
     Route: 065
  9. FENTANIL [Suspect]
     Active Substance: FENTANYL
     Dosage: INCREASED DOSE
     Route: 065
     Dates: start: 2014
  10. CALCIUM [Concomitant]
     Active Substance: CALCIUM
     Dosage: 1 DF, DAILY
  11. ENBREL [Suspect]
     Active Substance: ETANERCEPT
     Dosage: 50 MG, WEEKLY
     Route: 058
     Dates: start: 20140603, end: 20140824

REACTIONS (31)
  - Nasopharyngitis [Recovered/Resolved]
  - Headache [Not Recovered/Not Resolved]
  - Facial pain [Recovering/Resolving]
  - Oral pain [Not Recovered/Not Resolved]
  - Fear of injection [Not Recovered/Not Resolved]
  - Malaise [Recovering/Resolving]
  - Fatigue [Not Recovered/Not Resolved]
  - Withdrawal syndrome [Unknown]
  - Back pain [Not Recovered/Not Resolved]
  - Injection site pruritus [Recovered/Resolved]
  - Myalgia [Not Recovered/Not Resolved]
  - Injection site bruising [Recovered/Resolved]
  - Injection site inflammation [Recovered/Resolved]
  - Pyrexia [Recovered/Resolved]
  - Decreased immune responsiveness [Not Recovered/Not Resolved]
  - Pain [Recovering/Resolving]
  - Hyperhidrosis [Recovered/Resolved]
  - Abdominal pain upper [Not Recovered/Not Resolved]
  - Urticaria [Not Recovered/Not Resolved]
  - Condition aggravated [Not Recovered/Not Resolved]
  - Constipation [Not Recovered/Not Resolved]
  - Arthralgia [Not Recovered/Not Resolved]
  - Restlessness [Unknown]
  - Urinary tract infection [Recovered/Resolved]
  - Injection site urticaria [Recovered/Resolved]
  - Injection site pain [Recovered/Resolved]
  - Injection site erythema [Recovered/Resolved]
  - Feeling abnormal [Recovered/Resolved]
  - Arthritis [Not Recovered/Not Resolved]
  - Injection site warmth [Recovered/Resolved]
  - Kidney infection [Recovered/Resolved]

NARRATIVE: CASE EVENT DATE: 2014
